FAERS Safety Report 17015904 (Version 1)
Quarter: 2019Q4

REPORT INFORMATION
  Report Type: Spontaneous
  Country: US (occurrence: US)
  Receive Date: 20191111
  Receipt Date: 20191111
  Transmission Date: 20200122
  Serious: Yes (Other)
  Sender: FDA-Public Use
  Company Number: PHHY2007US014050

PATIENT
  Age: 62 Year
  Sex: Male
  Weight: 143 kg

DRUGS (8)
  1. ANGIOMAX [Suspect]
     Active Substance: BIVALIRUDIN
     Dosage: 0.75 MG/KG, BOLUS
     Route: 040
     Dates: start: 20070621, end: 20070621
  2. ANGIOMAX [Suspect]
     Active Substance: BIVALIRUDIN
     Dosage: 1.75 MG/KG, HR
     Route: 041
     Dates: start: 20070621, end: 20070621
  3. WARFARIN [Suspect]
     Active Substance: WARFARIN
     Indication: ANTICOAGULANT THERAPY
     Dosage: 6 MG, QD
     Route: 048
     Dates: end: 20070620
  4. WARFARIN [Suspect]
     Active Substance: WARFARIN
     Indication: ATRIAL FIBRILLATION
     Dosage: UNK
     Route: 065
     Dates: start: 2007
  5. ANGIOMAX [Suspect]
     Active Substance: BIVALIRUDIN
     Indication: ACUTE CORONARY SYNDROME
     Dosage: 0.25 MG/KG, HR
     Route: 042
     Dates: start: 20070621, end: 20070621
  6. ANGIOMAX [Suspect]
     Active Substance: BIVALIRUDIN
     Indication: PERCUTANEOUS CORONARY INTERVENTION
     Dosage: 0.1 MG/KG, BOLUS
     Route: 040
     Dates: start: 20070621, end: 20070621
  7. SOTALOL. [Concomitant]
     Active Substance: SOTALOL
  8. ANGIOMAX [Suspect]
     Active Substance: BIVALIRUDIN
     Dosage: 0.25 MG/KG, HR
     Route: 041
     Dates: start: 20070621

REACTIONS (2)
  - Arrhythmia [Unknown]
  - International normalised ratio increased [Recovered/Resolved]

NARRATIVE: CASE EVENT DATE: 200706
